FAERS Safety Report 7209039-4 (Version None)
Quarter: 2010Q4

REPORT INFORMATION
  Report Type: 
  Country: None (occurrence: None)
  Receive Date: 20101222
  Receipt Date: 20101214
  Transmission Date: 20110411
  Serious: Yes (Other)
  Sender: FDA-Public Use
  Company Number: CIP10002409

PATIENT
  Age: 33 Year
  Sex: Female

DRUGS (6)
  1. ACTONEL [Suspect]
     Dosage: 17.5 MG ONCE WEEKLY, ORAL
     Route: 048
     Dates: start: 20090706, end: 20100527
  2. PREDONINE [Suspect]
     Indication: IMMUNOSUPPRESSION
     Dosage: 10 MG, 50 MG
     Dates: start: 20070701
  3. PREDONINE [Suspect]
     Indication: IMMUNOSUPPRESSION
     Dosage: 10 MG, 50 MG
     Dates: start: 20090706
  4. MUCOSTA (REBAMAPIDE) [Suspect]
     Indication: PROPHYLAXIS AGAINST GASTROINTESTINAL ULCER
     Dosage: 300 MG
     Dates: start: 20090706
  5. FAMOTIDINE [Concomitant]
  6. PLETAL [Concomitant]

REACTIONS (3)
  - ABORTION INDUCED [None]
  - ABORTION MISSED [None]
  - DRUG EXPOSURE DURING PREGNANCY [None]
